FAERS Safety Report 9805621 (Version 1)
Quarter: 2014Q2

REPORT INFORMATION
  Report Type: Spontaneous
  Country: US (occurrence: None)
  Receive Date: 20140108
  Receipt Date: 20140108
  Transmission Date: 20141212
  Serious: Yes (Hospitalization)
  Sender: FDA-Public Use
  Company Number: None

PATIENT
  Age: 46 Year
  Sex: Female
  Weight: 85.73 kg

DRUGS (1)
  1. ABT-888 (VELIPARIB) IND: 115924 [Suspect]

REACTIONS (1)
  - Dyspnoea [None]
